FAERS Safety Report 10057268 (Version 1)
Quarter: 2014Q2

REPORT INFORMATION
  Report Type: Spontaneous
  Country: US (occurrence: US)
  Receive Date: 20140403
  Receipt Date: 20140403
  Transmission Date: 20141212
  Serious: Yes (Hospitalization, Other)
  Sender: FDA-Public Use
  Company Number: US-GILEAD-2014-0098734

PATIENT
  Age: 54 Year
  Sex: Female

DRUGS (13)
  1. LETAIRIS [Suspect]
     Indication: PULMONARY ARTERIAL HYPERTENSION
     Dosage: 10 MG, QD
     Route: 048
     Dates: start: 20111223
  2. TYVASO [Concomitant]
  3. LEVOTHYROXINE [Concomitant]
  4. LIBRAX                             /00033301/ [Concomitant]
  5. XANAX [Concomitant]
  6. PREVACID [Concomitant]
  7. SPIRONOLACTONE [Concomitant]
  8. DIGOXIN [Concomitant]
  9. COUMADIN                           /00014802/ [Concomitant]
  10. LASIX                              /00032601/ [Concomitant]
  11. CALTRATE                           /07357001/ [Concomitant]
  12. UROCIT-K [Concomitant]
  13. LISINOPRIL [Concomitant]

REACTIONS (2)
  - Nephrolithiasis [Recovered/Resolved]
  - Pyrexia [Unknown]
